FAERS Safety Report 13765527 (Version 1)
Quarter: 2017Q3

REPORT INFORMATION
  Report Type: Spontaneous
  Country: US (occurrence: US)
  Receive Date: 20170718
  Receipt Date: 20170718
  Transmission Date: 20171127
  Serious: No
  Sender: FDA-Public Use
  Company Number: GXBR2017US001489

PATIENT
  Sex: Female

DRUGS (1)
  1. SPIRONOLACTONE TABLETS USP [Suspect]
     Active Substance: SPIRONOLACTONE
     Indication: DIURETIC THERAPY
     Dosage: UNK DF, UNK
     Route: 065

REACTIONS (3)
  - Burning sensation [Unknown]
  - Nausea [Unknown]
  - Abdominal pain upper [Unknown]
